FAERS Safety Report 12578447 (Version 1)
Quarter: 2016Q3

REPORT INFORMATION
  Report Type: Other
  Country: JP (occurrence: JP)
  Receive Date: 20160721
  Receipt Date: 20160721
  Transmission Date: 20161109
  Serious: Yes (Other)
  Sender: FDA-Public Use
  Company Number: JP-NOVEL LABORATORIES, INC-2016-03193

PATIENT
  Age: 8 Year
  Sex: Male
  Weight: 15 kg

DRUGS (2)
  1. OLOPATADINE [Suspect]
     Active Substance: OLOPATADINE
     Indication: URTICARIA
     Dosage: 5 MG
     Route: 048
  2. CETIRIZINE [Suspect]
     Active Substance: CETIRIZINE HYDROCHLORIDE
     Indication: URTICARIA
     Dosage: 5 MG
     Route: 048

REACTIONS (2)
  - Dysuria [Recovering/Resolving]
  - Sciatica [Recovering/Resolving]
